FAERS Safety Report 14876582 (Version 3)
Quarter: 2019Q3

REPORT INFORMATION
  Report Type: Spontaneous
  Country: US (occurrence: US)
  Receive Date: 20180510
  Receipt Date: 20190808
  Transmission Date: 20191004
  Serious: Yes (Other)
  Sender: FDA-Public Use
  Company Number: US-CELLTRION INC.-2018US017987

PATIENT

DRUGS (7)
  1. ASPIRIN [ACETYLSALICYLIC ACID] [Concomitant]
     Active Substance: ASPIRIN
     Dosage: UNK
     Dates: start: 2018
  2. INFLECTRA [Suspect]
     Active Substance: INFLIXIMAB-DYYB
     Dosage: 6 DF, CYCLIC (EVERY 8 WEEKS)
     Route: 065
     Dates: start: 20180411, end: 20180411
  3. INFLECTRA [Suspect]
     Active Substance: INFLIXIMAB-DYYB
     Dosage: 600 MG, EVERY 8 WEEKS 100 MG PER VIAL
     Route: 042
     Dates: start: 20180104, end: 20190603
  4. NAPROXEN. [Concomitant]
     Active Substance: NAPROXEN
     Indication: PAIN
     Dosage: 500 MG TWICE A DAY AS NEEDED ORALLY
     Route: 048
     Dates: start: 20180906
  5. INFLECTRA [Suspect]
     Active Substance: INFLIXIMAB-DYYB
     Indication: ANKYLOSING SPONDYLITIS
     Dosage: 600 MG (AT WEEKS 0, 2, 6 THEN EVERY 8 WEEKS)
     Route: 065
  6. INFLECTRA [Suspect]
     Active Substance: INFLIXIMAB-DYYB
     Dosage: 6 VIALS EVERY 8 WEEKS
     Route: 065
     Dates: start: 20180702, end: 20180702
  7. INFLECTRA [Suspect]
     Active Substance: INFLIXIMAB-DYYB
     Dosage: 6 DF, CYCLIC (6 VIALS EVERY 8 WEEKS)
     Route: 065
     Dates: start: 20180509, end: 20180509

REACTIONS (12)
  - Chest injury [Unknown]
  - Pain [Not Recovered/Not Resolved]
  - Inappropriate schedule of product administration [Unknown]
  - Condition aggravated [Recovered/Resolved]
  - Joint stiffness [Not Recovered/Not Resolved]
  - Mobility decreased [Not Recovered/Not Resolved]
  - Fall [Recovered/Resolved]
  - Product dose omission [Unknown]
  - Head injury [Unknown]
  - Swelling [Not Recovered/Not Resolved]
  - Product prescribing issue [Unknown]
  - Unevaluable event [Unknown]

NARRATIVE: CASE EVENT DATE: 20190603
